FAERS Safety Report 14101883 (Version 3)
Quarter: 2017Q4

REPORT INFORMATION
  Report Type: Report from Study
  Country: None (occurrence: US)
  Receive Date: 20171018
  Receipt Date: 20171205
  Transmission Date: 20180321
  Serious: Yes (Other)
  Sender: FDA-Public Use
  Company Number: US-ABBVIE-17K-163-1952314-00

PATIENT
  Age: 34 Year
  Sex: Female

DRUGS (2)
  1. HUMIRA [Suspect]
     Active Substance: ADALIMUMAB
     Indication: CROHN^S DISEASE
     Route: 058
     Dates: start: 2016, end: 201703
  2. HUMIRA [Suspect]
     Active Substance: ADALIMUMAB
     Route: 058
     Dates: start: 2017

REACTIONS (32)
  - Dysmenorrhoea [Unknown]
  - Contusion [Unknown]
  - Road traffic accident [Unknown]
  - Alopecia [Unknown]
  - Therapeutic response shortened [Unknown]
  - Gallbladder disorder [Unknown]
  - Pain in extremity [Unknown]
  - Chest pain [Unknown]
  - Urticaria [Unknown]
  - Stress [Unknown]
  - Anxiety [Unknown]
  - Infection susceptibility increased [Unknown]
  - Musculoskeletal pain [Unknown]
  - Gastroenteritis viral [Unknown]
  - Neuralgia [Unknown]
  - Tooth fracture [Unknown]
  - Asthenia [Unknown]
  - Fibromyalgia [Unknown]
  - Gastrooesophageal reflux disease [Unknown]
  - Anaemia [Unknown]
  - Crohn^s disease [Unknown]
  - Streptococcal infection [Unknown]
  - Influenza [Unknown]
  - Urinary tract infection [Unknown]
  - Stomatitis [Unknown]
  - Menorrhagia [Unknown]
  - Dysphagia [Unknown]
  - Drug hypersensitivity [Unknown]
  - Urticaria [Unknown]
  - Blood urine present [Unknown]
  - Depression [Unknown]
  - Irritable bowel syndrome [Unknown]

NARRATIVE: CASE EVENT DATE: 2017
